FAERS Safety Report 5740243-8 (Version None)
Quarter: 2008Q2

REPORT INFORMATION
  Report Type: 
  Country: None (occurrence: None)
  Receive Date: 20080516
  Receipt Date: 20080507
  Transmission Date: 20081010
  Serious: Yes (Death, Hospitalization)
  Sender: FDA-Public Use
  Company Number: CO-JNJFOC-20080501766

PATIENT
  Age: 62 Year
  Sex: Female
  Weight: 59 kg

DRUGS (4)
  1. REMICADE [Suspect]
     Indication: RHEUMATOID ARTHRITIS
     Route: 042
  2. PREDNISOLONE [Concomitant]
  3. FOLIC ACID [Concomitant]
  4. CALCITRIOL [Concomitant]

REACTIONS (3)
  - DEATH [None]
  - HIP ARTHROPLASTY [None]
  - POST PROCEDURAL INFECTION [None]
